FAERS Safety Report 6988695-X (Version None)
Quarter: 2010Q3

REPORT INFORMATION
  Report Type: 
  Country: None (occurrence: None)
  Receive Date: 20100916
  Receipt Date: 20100908
  Transmission Date: 20110219
  Serious: Yes (Hospitalization)
  Sender: FDA-Public Use
  Company Number: US-ELI_LILLY_AND_COMPANY-US200905004481

PATIENT
  Sex: Female
  Weight: 105.67 kg

DRUGS (5)
  1. BYETTA [Suspect]
     Indication: TYPE 2 DIABETES MELLITUS
     Dosage: 5 UG, 2/D
     Route: 058
  2. SYNTHROID [Concomitant]
     Dosage: 0.75 UG, DAILY (1/D)
     Route: 048
  3. ESTRACE [Concomitant]
     Dosage: UNK, UNKNOWN
  4. PROVERA [Concomitant]
     Dosage: UNK, UNKNOWN
  5. DIOVAN /SCH/ [Concomitant]
     Indication: HYPERTENSION
     Dosage: UNK, UNKNOWN

REACTIONS (25)
  - ABDOMINAL DISTENSION [None]
  - ABDOMINAL RIGIDITY [None]
  - BLOOD GLUCOSE FLUCTUATION [None]
  - BLOOD GLUCOSE INCREASED [None]
  - COLD SWEAT [None]
  - CRYING [None]
  - DECREASED APPETITE [None]
  - DIZZINESS [None]
  - DRUG INEFFECTIVE [None]
  - EAR PAIN [None]
  - EARLY SATIETY [None]
  - ERUCTATION [None]
  - FEELING HOT [None]
  - GASTRIC DISORDER [None]
  - HEADACHE [None]
  - HYPOAESTHESIA [None]
  - HYPOAESTHESIA FACIAL [None]
  - IMPAIRED GASTRIC EMPTYING [None]
  - MALAISE [None]
  - NAUSEA [None]
  - STRESS [None]
  - URINE ODOUR ABNORMAL [None]
  - VAGINAL ODOUR [None]
  - VOMITING [None]
  - WEIGHT DECREASED [None]
